FAERS Safety Report 19455334 (Version 9)
Quarter: 2021Q4

REPORT INFORMATION
  Report Type: Report from Study
  Country: US (occurrence: US)
  Receive Date: 20210623
  Receipt Date: 20211109
  Transmission Date: 20220303
  Serious: Yes (Death, Hospitalization, Other)
  Sender: FDA-Public Use
  Company Number: US-SEATTLE GENETICS-2021SGN03265

PATIENT
  Age: 65 Year
  Sex: Female

DRUGS (9)
  1. TUCATINIB [Suspect]
     Active Substance: TUCATINIB
     Indication: HER2 positive breast cancer
     Dosage: 300 MG, BID
     Route: 048
     Dates: start: 20210512
  2. TUCATINIB [Suspect]
     Active Substance: TUCATINIB
     Dosage: 150 UNK
  3. TUCATINIB [Suspect]
     Active Substance: TUCATINIB
     Dosage: UNK
     Dates: end: 20210722
  4. XELODA [Suspect]
     Active Substance: CAPECITABINE
     Indication: HER2 positive breast cancer
     Dosage: 100 MG, BID 14 DAYS ON, 7 DAYS OFF
     Route: 048
  5. HERCEPTIN [Concomitant]
     Active Substance: TRASTUZUMAB
     Route: 042
  6. CELECOXIB [Concomitant]
     Active Substance: CELECOXIB
  7. PEPCID [Concomitant]
     Active Substance: FAMOTIDINE
  8. ZYPREXA [Concomitant]
     Active Substance: OLANZAPINE
  9. ZOFRAN [Concomitant]
     Active Substance: ONDANSETRON HYDROCHLORIDE

REACTIONS (11)
  - Disease progression [Fatal]
  - Blood sodium abnormal [Recovered/Resolved]
  - Blood potassium abnormal [Not Recovered/Not Resolved]
  - Pneumonia aspiration [Recovering/Resolving]
  - Colitis [Recovered/Resolved]
  - General physical health deterioration [Unknown]
  - Pyrexia [Recovered/Resolved]
  - Fatigue [Recovering/Resolving]
  - Nausea [Not Recovered/Not Resolved]
  - Vomiting [Not Recovered/Not Resolved]
  - Product dose omission issue [Unknown]

NARRATIVE: CASE EVENT DATE: 20210512
